FAERS Safety Report 4525939-8 (Version None)
Quarter: 2004Q4

REPORT INFORMATION
  Report Type: 
  Country: None (occurrence: None)
  Receive Date: 20041213
  Receipt Date: 20041206
  Transmission Date: 20050328
  Serious: Yes (Life-Threatening, Hospitalization, Disabling)
  Sender: FDA-Public Use
  Company Number: US-MERCK-0412USA00723

PATIENT
  Age: 72 Year
  Sex: Male

DRUGS (5)
  1. LIPITOR [Concomitant]
     Route: 065
  2. PREVACID [Concomitant]
     Route: 065
  3. XANAX [Concomitant]
     Route: 065
  4. VIOXX [Suspect]
     Indication: ARTHRITIS
     Route: 048
     Dates: start: 19990101, end: 20040101
  5. LISINOPRIL [Concomitant]
     Route: 065

REACTIONS (3)
  - DYSPNOEA [None]
  - HEART INJURY [None]
  - MYOCARDIAL INFARCTION [None]
